FAERS Safety Report 16899425 (Version 2)
Quarter: 2019Q4

REPORT INFORMATION
  Report Type: Spontaneous
  Country: FR (occurrence: FR)
  Receive Date: 20191009
  Receipt Date: 20191014
  Transmission Date: 20200122
  Serious: Yes (Death)
  Sender: FDA-Public Use
  Company Number: FR-CHIESI USA, INC.-FR-2019CHI000377

PATIENT

DRUGS (2)
  1. CUROSURF [Suspect]
     Active Substance: PORACTANT ALFA
     Dosage: 120 MG, UNK
     Route: 065
     Dates: start: 20190919
  2. CUROSURF [Suspect]
     Active Substance: PORACTANT ALFA
     Indication: NEONATAL RESPIRATORY DISTRESS SYNDROME
     Dosage: 240 MG, UNK
     Route: 007
     Dates: start: 20190919

REACTIONS (9)
  - Bronchospasm [Fatal]
  - Atelectasis neonatal [Fatal]
  - Product complaint [Not Recovered/Not Resolved]
  - Malaise [Fatal]
  - Bronchial injury [Fatal]
  - Subcutaneous emphysema [Fatal]
  - Pneumothorax [Fatal]
  - Bradycardia neonatal [Fatal]
  - Tracheal injury [Fatal]

NARRATIVE: CASE EVENT DATE: 20190919
